FAERS Safety Report 9149711 (Version 1)
Quarter: 2013Q1

REPORT INFORMATION
  Report Type: Spontaneous
  Country: US (occurrence: None)
  Receive Date: 20130131
  Receipt Date: 20130131
  Transmission Date: 20140127
  Serious: Yes (Hospitalization)
  Sender: FDA-Public Use
  Company Number: 2013MA000502

PATIENT
  Age: 48 Year
  Sex: Female

DRUGS (3)
  1. DESIPRAMINE HYDROCHLORIDE [Suspect]
     Route: 048
     Dates: start: 201212, end: 20121221
  2. ZOLOFT [Suspect]
     Route: 048
     Dates: start: 201212
  3. VIIBRYD [Suspect]
     Route: 048
     Dates: end: 2012

REACTIONS (4)
  - Nausea [None]
  - Vomiting [None]
  - Dehydration [None]
  - Anxiety [None]
